FAERS Safety Report 4944465-5 (Version None)
Quarter: 2006Q1

REPORT INFORMATION
  Report Type: 
  Country: None (occurrence: None)
  Receive Date: 20060123
  Receipt Date: 20051129
  Transmission Date: 20060701
  Serious: No
  Sender: FDA-Public Use
  Company Number: 2005-BP-20803BP

PATIENT
  Sex: Female

DRUGS (1)
  1. APTIVUS [Suspect]
     Indication: HIV INFECTION
     Dosage: 2 CAPSULES BID, PO
     Route: 048
     Dates: start: 20051101, end: 20051101

REACTIONS (2)
  - PRURITUS [None]
  - RASH GENERALISED [None]
